FAERS Safety Report 6896209-8 (Version None)
Quarter: 2010Q3

REPORT INFORMATION
  Report Type: 
  Country: None (occurrence: None)
  Receive Date: 20100802
  Receipt Date: 20100726
  Transmission Date: 20110219
  Serious: Yes (Congenital Anomaly)
  Sender: FDA-Public Use
  Company Number: A0872559A

PATIENT
  Sex: Male
  Weight: 2.5 kg

DRUGS (4)
  1. COMBIVIR [Suspect]
     Indication: HIV INFECTION
     Dates: start: 20031103
  2. VIRACEPT [Suspect]
     Indication: HIV INFECTION
     Dates: start: 20031103, end: 20040812
  3. IRON [Concomitant]
  4. ISOCONAZOLE [Concomitant]

REACTIONS (4)
  - CHORDEE [None]
  - CRYPTORCHISM [None]
  - DRUG EXPOSURE DURING PREGNANCY [None]
  - HYPOSPADIAS [None]
